FAERS Safety Report 6779140-8 (Version None)
Quarter: 2010Q2

REPORT INFORMATION
  Report Type: 
  Country: None (occurrence: None)
  Receive Date: 20100618
  Receipt Date: 20100609
  Transmission Date: 20101027
  Serious: Yes (Hospitalization)
  Sender: FDA-Public Use
  Company Number: PL-BRISTOL-MYERS SQUIBB COMPANY-15062656

PATIENT
  Age: 47 Year
  Sex: Female

DRUGS (8)
  1. LYSODREN [Suspect]
     Indication: ADRENOCORTICAL CARCINOMA
     Dosage: ON JAN10 DOSE WAS 6.5G
     Dates: start: 20081001, end: 20100107
  2. HYDROCORTISONE [Concomitant]
  3. FLUDROCORTISONE [Concomitant]
  4. ALLOPURINOL [Concomitant]
  5. LEVOTHYROXINE SODIUM [Concomitant]
  6. OMEPRAZOLE [Concomitant]
  7. VALSARTAN [Concomitant]
  8. VENLAFAXINE HCL [Concomitant]

REACTIONS (7)
  - ASTHENIA [None]
  - DISTURBANCE IN ATTENTION [None]
  - DRUG LEVEL ABOVE THERAPEUTIC [None]
  - DYSPHEMIA [None]
  - MEMORY IMPAIRMENT [None]
  - SOMNOLENCE [None]
  - VERTIGO [None]
